FAERS Safety Report 10301208 (Version 3)
Quarter: 2014Q3

REPORT INFORMATION
  Report Type: Spontaneous
  Country: JP (occurrence: JP)
  Receive Date: 20140714
  Receipt Date: 20140814
  Transmission Date: 20150326
  Serious: Yes (Death, Other)
  Sender: FDA-Public Use
  Company Number: JP-JNJFOC-20140520244

PATIENT
  Age: 31 Year
  Sex: Female
  Weight: 50 kg

DRUGS (46)
  1. GLUCOSE [Concomitant]
     Active Substance: DEXTROSE
     Indication: METASTASES TO LIVER
     Route: 041
     Dates: start: 20140521, end: 20140529
  2. RINDERON V [Concomitant]
     Active Substance: BETAMETHASONE VALERATE
     Indication: METASTASES TO BONE
     Route: 041
     Dates: start: 20140521, end: 20140529
  3. CERCINE [Concomitant]
     Active Substance: DIAZEPAM
     Indication: METASTASES TO BONE
     Route: 048
     Dates: start: 20140502, end: 20140523
  4. BIO-THREE [Concomitant]
     Active Substance: HERBALS
     Indication: METASTASES TO LIVER
     Route: 048
     Dates: start: 20140508, end: 20140520
  5. FENTANYL CITRATE. [Suspect]
     Active Substance: FENTANYL CITRATE
     Indication: CANCER PAIN
     Route: 041
     Dates: start: 20140529
  6. GLUCOSE [Concomitant]
     Active Substance: DEXTROSE
     Indication: METASTASES TO BONE
     Route: 041
     Dates: start: 20140521, end: 20140529
  7. OXINORM [Concomitant]
     Active Substance: OXYCODONE HYDROCHLORIDE
     Indication: METASTASES TO BONE
     Route: 048
     Dates: start: 20140408, end: 2014
  8. OXINORM [Concomitant]
     Active Substance: OXYCODONE HYDROCHLORIDE
     Indication: METASTASES TO LUNG
     Route: 048
     Dates: start: 2014, end: 20140521
  9. MOHRUS TAPE [Concomitant]
     Active Substance: KETOPROFEN
     Indication: METASTASES TO BONE
     Route: 062
     Dates: start: 20140423, end: 20140524
  10. TAKEPRON [Concomitant]
     Active Substance: LANSOPRAZOLE
     Indication: METASTASES TO LUNG
     Route: 048
     Dates: start: 20140429, end: 20140520
  11. MAGMITT [Concomitant]
     Active Substance: MAGNESIUM OXIDE
     Indication: METASTASES TO LIVER
     Route: 048
     Dates: start: 20140501, end: 20140524
  12. CERCINE [Concomitant]
     Active Substance: DIAZEPAM
     Indication: METASTASES TO LIVER
     Route: 048
     Dates: start: 20140502, end: 20140523
  13. BIO-THREE [Concomitant]
     Active Substance: HERBALS
     Indication: METASTASES TO BONE
     Route: 048
     Dates: start: 20140508, end: 20140520
  14. FENTANYL CITRATE. [Suspect]
     Active Substance: FENTANYL CITRATE
     Indication: CANCER PAIN
     Route: 041
     Dates: start: 20140523, end: 20140525
  15. OXINORM [Concomitant]
     Active Substance: OXYCODONE HYDROCHLORIDE
     Indication: METASTASES TO LIVER
     Route: 048
     Dates: start: 2014, end: 20140521
  16. CALONAL [Concomitant]
     Active Substance: ACETAMINOPHEN
     Indication: METASTASES TO BONE
     Route: 048
     Dates: start: 20140408, end: 20140524
  17. TAKEPRON [Concomitant]
     Active Substance: LANSOPRAZOLE
     Indication: METASTASES TO BONE
     Route: 048
     Dates: start: 20140429, end: 20140520
  18. FENTANYL CITRATE. [Suspect]
     Active Substance: FENTANYL CITRATE
     Indication: CANCER PAIN
     Route: 040
     Dates: start: 20140526
  19. DUROTEP MT [Suspect]
     Active Substance: FENTANYL
     Indication: CANCER PAIN
     Route: 062
     Dates: start: 2014, end: 20140521
  20. DUROTEP MT [Suspect]
     Active Substance: FENTANYL
     Indication: CANCER PAIN
     Route: 062
     Dates: start: 20140414, end: 2014
  21. NAIXAN [Concomitant]
     Active Substance: NAPROXEN SODIUM
     Indication: METASTASES TO BONE
     Route: 048
     Dates: start: 20140408, end: 20140530
  22. OXINORM [Concomitant]
     Active Substance: OXYCODONE HYDROCHLORIDE
     Indication: METASTASES TO LIVER
     Route: 048
     Dates: start: 20140408, end: 2014
  23. CALONAL [Concomitant]
     Active Substance: ACETAMINOPHEN
     Indication: METASTASES TO LUNG
     Route: 048
     Dates: start: 20140408, end: 20140524
  24. MAGMITT [Concomitant]
     Active Substance: MAGNESIUM OXIDE
     Indication: METASTASES TO LUNG
     Route: 048
     Dates: start: 20140501, end: 20140524
  25. FENTANYL CITRATE. [Suspect]
     Active Substance: FENTANYL CITRATE
     Indication: CANCER PAIN
     Route: 041
     Dates: start: 20140526, end: 20140530
  26. FENTANYL CITRATE. [Suspect]
     Active Substance: FENTANYL CITRATE
     Indication: CANCER PAIN
     Route: 041
     Dates: start: 20140521, end: 20140521
  27. FENTANYL CITRATE. [Suspect]
     Active Substance: FENTANYL CITRATE
     Indication: CANCER PAIN
     Route: 041
     Dates: start: 20140522, end: 20140522
  28. RINDERON V [Concomitant]
     Active Substance: BETAMETHASONE VALERATE
     Indication: METASTASES TO LIVER
     Route: 048
     Dates: start: 20140429, end: 20140520
  29. BIO-THREE [Concomitant]
     Active Substance: HERBALS
     Indication: METASTASES TO LUNG
     Route: 048
     Dates: start: 20140508, end: 20140520
  30. FENTANYL CITRATE. [Suspect]
     Active Substance: FENTANYL CITRATE
     Indication: CANCER PAIN
     Route: 040
     Dates: start: 20140529
  31. GLUCOSE [Concomitant]
     Active Substance: DEXTROSE
     Indication: METASTASES TO LUNG
     Route: 041
     Dates: start: 20140521, end: 20140529
  32. RINDERON V [Concomitant]
     Active Substance: BETAMETHASONE VALERATE
     Indication: METASTASES TO LIVER
     Route: 041
     Dates: start: 20140521, end: 20140529
  33. NAIXAN [Concomitant]
     Active Substance: NAPROXEN SODIUM
     Indication: METASTASES TO LIVER
     Route: 048
     Dates: start: 20140408, end: 20140530
  34. OXINORM [Concomitant]
     Active Substance: OXYCODONE HYDROCHLORIDE
     Indication: METASTASES TO LUNG
     Route: 048
     Dates: start: 20140408, end: 2014
  35. RINDERON V [Concomitant]
     Active Substance: BETAMETHASONE VALERATE
     Indication: METASTASES TO LUNG
     Route: 048
     Dates: start: 20140429, end: 20140520
  36. MAGMITT [Concomitant]
     Active Substance: MAGNESIUM OXIDE
     Indication: METASTASES TO BONE
     Route: 048
     Dates: start: 20140501, end: 20140524
  37. FENTANYL CITRATE. [Suspect]
     Active Substance: FENTANYL CITRATE
     Indication: CANCER PAIN
     Route: 041
     Dates: start: 20140526
  38. MOHRUS TAPE [Concomitant]
     Active Substance: KETOPROFEN
     Indication: METASTASES TO LIVER
     Route: 062
     Dates: start: 20140423, end: 20140524
  39. RINDERON V [Concomitant]
     Active Substance: BETAMETHASONE VALERATE
     Indication: METASTASES TO BONE
     Route: 048
     Dates: start: 20140429, end: 20140520
  40. RINDERON V [Concomitant]
     Active Substance: BETAMETHASONE VALERATE
     Indication: METASTASES TO LUNG
     Route: 041
     Dates: start: 20140521, end: 20140529
  41. NAIXAN [Concomitant]
     Active Substance: NAPROXEN SODIUM
     Indication: METASTASES TO LUNG
     Route: 048
     Dates: start: 20140408, end: 20140530
  42. OXINORM [Concomitant]
     Active Substance: OXYCODONE HYDROCHLORIDE
     Indication: METASTASES TO BONE
     Route: 048
     Dates: start: 2014, end: 20140521
  43. CALONAL [Concomitant]
     Active Substance: ACETAMINOPHEN
     Indication: METASTASES TO LIVER
     Route: 048
     Dates: start: 20140408, end: 20140524
  44. MOHRUS TAPE [Concomitant]
     Active Substance: KETOPROFEN
     Indication: METASTASES TO LUNG
     Route: 062
     Dates: start: 20140423, end: 20140524
  45. TAKEPRON [Concomitant]
     Active Substance: LANSOPRAZOLE
     Indication: METASTASES TO LIVER
     Route: 048
     Dates: start: 20140429, end: 20140520
  46. CERCINE [Concomitant]
     Active Substance: DIAZEPAM
     Indication: METASTASES TO LUNG
     Route: 048
     Dates: start: 20140502, end: 20140523

REACTIONS (3)
  - Depressed level of consciousness [Recovered/Resolved]
  - Metastases to bone [Fatal]
  - Respiratory depression [Recovered/Resolved]

NARRATIVE: CASE EVENT DATE: 20140528
